FAERS Safety Report 6023162-1 (Version None)
Quarter: 2008Q4

REPORT INFORMATION
  Report Type: 
  Country: None (occurrence: None)
  Receive Date: 20081230
  Receipt Date: 20081222
  Transmission Date: 20090506
  Serious: Yes (Other)
  Sender: FDA-Public Use
  Company Number: B0550319A

PATIENT
  Age: 59 Year
  Sex: Female

DRUGS (18)
  1. REQUIP [Suspect]
     Indication: PARKINSONISM
     Dosage: .5MG THREE TIMES PER DAY
     Route: 048
     Dates: start: 20081209
  2. AMARYL [Concomitant]
     Indication: DIABETES MELLITUS
     Dosage: 3MG TWICE PER DAY
     Route: 048
  3. UNKNOWN DRUG [Concomitant]
     Dosage: 50MG TWICE PER DAY
     Route: 048
  4. POLAPREZINC [Concomitant]
     Indication: GASTRIC ULCER
     Dosage: 75MG TWICE PER DAY
     Route: 048
  5. UNKNOWN DRUG [Concomitant]
     Dosage: 25MG PER DAY
     Route: 048
  6. LUPRAC [Concomitant]
     Dosage: 8MG PER DAY
     Route: 048
  7. THYRADIN S [Concomitant]
     Indication: HYPOTHYROIDISM
     Dosage: 50MG PER DAY
     Route: 048
  8. UNKNOWN DRUG [Concomitant]
     Indication: PARKINSONISM
     Dosage: 50MG PER DAY
     Route: 048
  9. ARICEPT [Concomitant]
     Indication: HEPATIC ENCEPHALOPATHY
     Dosage: 5MG PER DAY
     Route: 048
  10. UNKNOWN DRUG [Concomitant]
     Dosage: 15MG PER DAY
     Route: 048
  11. PAXIL [Concomitant]
     Indication: DRUG USE FOR UNKNOWN INDICATION
     Dosage: 20MG PER DAY
     Route: 048
  12. UBIRON [Concomitant]
     Indication: DRUG USE FOR UNKNOWN INDICATION
     Dosage: 100MG THREE TIMES PER DAY
     Route: 048
  13. MELBIN [Concomitant]
     Indication: DRUG USE FOR UNKNOWN INDICATION
     Dosage: 250MG THREE TIMES PER DAY
     Route: 048
  14. UNKNOWN DRUG [Concomitant]
     Indication: DIABETES MELLITUS
     Dosage: 75MG THREE TIMES PER DAY
     Route: 048
  15. FASTIC [Concomitant]
     Indication: DRUG USE FOR UNKNOWN INDICATION
     Dosage: 90MG THREE TIMES PER DAY
     Route: 048
  16. UNKNOWN DRUG [Concomitant]
     Indication: HEPATIC CIRRHOSIS
     Dosage: 4.15G THREE TIMES PER DAY
     Route: 048
  17. MYSLEE [Concomitant]
     Indication: DRUG USE FOR UNKNOWN INDICATION
     Dosage: 5MG PER DAY
     Route: 048
  18. UNKNOWN DRUG [Concomitant]
     Dosage: 100MG FOUR TIMES PER DAY
     Route: 048

REACTIONS (1)
  - COMA HEPATIC [None]
